FAERS Safety Report 14023479 (Version 1)
Quarter: 2017Q3

REPORT INFORMATION
  Report Type: Spontaneous
  Country: US (occurrence: US)
  Receive Date: 20170928
  Receipt Date: 20170928
  Transmission Date: 20171128
  Serious: No
  Sender: FDA-Public Use
  Company Number: US-SA-2016SA214388

PATIENT
  Age: 55 Year
  Sex: Female

DRUGS (11)
  1. GABAPENTIN. [Concomitant]
     Active Substance: GABAPENTIN
  2. CITALOPRAM [Concomitant]
     Active Substance: CITALOPRAM HYDROBROMIDE
  3. HYOSCYAMINE. [Concomitant]
     Active Substance: HYOSCYAMINE
  4. ADVAIR HFA [Concomitant]
     Active Substance: FLUTICASONE PROPIONATE\SALMETEROL XINAFOATE
  5. NEFAZODONE [Concomitant]
     Active Substance: NEFAZODONE
  6. LISINOPRIL. [Concomitant]
     Active Substance: LISINOPRIL
  7. SIMVASTATIN. [Concomitant]
     Active Substance: SIMVASTATIN
  8. MELOXICAM. [Concomitant]
     Active Substance: MELOXICAM
  9. AUBAGIO [Suspect]
     Active Substance: TERIFLUNOMIDE
     Indication: MULTIPLE SCLEROSIS
     Route: 048
     Dates: start: 20151014
  10. BACLOFEN. [Concomitant]
     Active Substance: BACLOFEN
  11. SERZONE [Concomitant]
     Active Substance: NEFAZODONE HYDROCHLORIDE

REACTIONS (1)
  - Hypoaesthesia [Unknown]

NARRATIVE: CASE EVENT DATE: 20161116
